FAERS Safety Report 17238973 (Version 7)
Quarter: 2020Q3

REPORT INFORMATION
  Report Type: Report from Study
  Country: US (occurrence: US)
  Receive Date: 20200106
  Receipt Date: 20200910
  Transmission Date: 20201102
  Serious: Yes (Hospitalization, Disabling, Other)
  Sender: FDA-Public Use
  Company Number: US-SA-2019SA337685

PATIENT

DRUGS (5)
  1. DUPILUMAB [Suspect]
     Active Substance: DUPILUMAB
     Dosage: 300 MG, QOW
     Route: 058
     Dates: start: 2019, end: 2020
  2. LOSARTAN. [Concomitant]
     Active Substance: LOSARTAN
     Indication: BLOOD PRESSURE MEASUREMENT
  3. DUPILUMAB [Suspect]
     Active Substance: DUPILUMAB
     Dosage: 300 MG, QOW
     Route: 058
     Dates: start: 20200706
  4. DUPILUMAB [Suspect]
     Active Substance: DUPILUMAB
     Indication: DERMATITIS ATOPIC
     Dosage: 600 MG, 1X
     Route: 058
     Dates: start: 20191022, end: 20191022
  5. DURICEF [Concomitant]
     Active Substance: CEFADROXIL
     Dosage: UNK, BID
     Dates: start: 20200513

REACTIONS (17)
  - Therapeutic response decreased [Unknown]
  - Device related infection [Unknown]
  - Cough [Unknown]
  - Visual impairment [Unknown]
  - Post procedural infection [Unknown]
  - Hip fracture [Recovered/Resolved]
  - Sinusitis [Unknown]
  - Product dose omission issue [Unknown]
  - Infection [Unknown]
  - Fall [Unknown]
  - Post procedural haematoma [Unknown]
  - Sneezing [Unknown]
  - Throat irritation [Unknown]
  - Skin exfoliation [Unknown]
  - Dry skin [Unknown]
  - Wrist deformity [Unknown]
  - Sinus disorder [Unknown]

NARRATIVE: CASE EVENT DATE: 20191129
